FAERS Safety Report 5702848-X (Version None)
Quarter: 2008Q2

REPORT INFORMATION
  Report Type: 
  Country: None (occurrence: None)
  Receive Date: 20080411
  Receipt Date: 20080407
  Transmission Date: 20081010
  Serious: Yes (Hospitalization)
  Sender: FDA-Public Use
  Company Number: US-ASTRAZENECA-2008UW05659

PATIENT
  Age: 88 Year
  Sex: Female

DRUGS (1)
  1. ARIMIDEX [Suspect]
     Route: 048

REACTIONS (7)
  - ALOPECIA [None]
  - DIZZINESS [None]
  - FALL [None]
  - HOSPITALISATION [None]
  - HOT FLUSH [None]
  - PAIN IN EXTREMITY [None]
  - SYNCOPE [None]
